FAERS Safety Report 15154304 (Version 9)
Quarter: 2024Q3

REPORT INFORMATION
  Report Type: Report from Study
  Country: ES (occurrence: ES)
  Receive Date: 20180717
  Receipt Date: 20240802
  Transmission Date: 20241017
  Serious: Yes (Death, Other)
  Sender: MYLAN
  Company Number: None

PATIENT
  Age: 82 Year
  Sex: Female

DRUGS (4)
  1. MEMANTINE [Interacting]
     Active Substance: MEMANTINE
     Indication: Product used for unknown indication
     Dosage: 20 MG, 0-1-0
     Route: 048
     Dates: start: 20150101, end: 20170616
  2. GALANTAMINE [Interacting]
     Active Substance: GALANTAMINE
     Indication: Product used for unknown indication
     Dosage: 20 MILLIGRAM, QD 0-0-1
     Route: 048
     Dates: start: 20150101, end: 20170616
  3. METFORMIN HYDROCHLORIDE\VILDAGLIPTIN [Interacting]
     Active Substance: METFORMIN HYDROCHLORIDE\VILDAGLIPTIN
     Indication: Product used for unknown indication
     Dosage: 16 MILLIGRAM (0-1/2-1)
     Route: 048
     Dates: start: 20150101, end: 20170616
  4. LOSARTAN [Concomitant]
     Active Substance: LOSARTAN
     Indication: Product used for unknown indication
     Dosage: 100 MILLIGRAM, QD
     Route: 048
     Dates: start: 20150101

REACTIONS (2)
  - Inappropriate antidiuretic hormone secretion [Fatal]
  - Drug interaction [Fatal]

NARRATIVE: CASE EVENT DATE: 20170610
